FAERS Safety Report 17573132 (Version 1)
Quarter: 2020Q1

REPORT INFORMATION
  Report Type: Spontaneous
  Country: CH (occurrence: CH)
  Receive Date: 20200323
  Receipt Date: 20200323
  Transmission Date: 20200409
  Serious: Yes (Hospitalization, Other)
  Sender: FDA-Public Use
  Company Number: CH-ELI_LILLY_AND_COMPANY-CH202003006209

PATIENT
  Age: 76 Year
  Sex: Male

DRUGS (4)
  1. CYRAMZA [Suspect]
     Active Substance: RAMUCIRUMAB
     Indication: OESOPHAGEAL ADENOCARCINOMA
     Dosage: 2 DOSAGE FORM, UNK
     Route: 042
     Dates: start: 20181217, end: 20191217
  2. PACLITAXEL ACTAVIS [Suspect]
     Active Substance: PACLITAXEL
     Indication: OESOPHAGEAL ADENOCARCINOMA
     Dosage: 80 MG, THREE TIMES PER MONTH
     Route: 042
     Dates: start: 20181217, end: 201908
  3. PANTOZOL CONTROL [Concomitant]
     Active Substance: PANTOPRAZOLE SODIUM
     Dosage: 40 MG, UNK
     Route: 048
  4. VI-DE 3 [Concomitant]
     Active Substance: CHOLECALCIFEROL
     Dosage: 40 UNK, UNK
     Route: 048

REACTIONS (4)
  - Pleural effusion [Recovering/Resolving]
  - Congestive cardiomyopathy [Recovering/Resolving]
  - Adrenal insufficiency [Not Recovered/Not Resolved]
  - Malignant neoplasm progression [Unknown]

NARRATIVE: CASE EVENT DATE: 20191228
